FAERS Safety Report 17423904 (Version 7)
Quarter: 2021Q3

REPORT INFORMATION
  Report Type: Spontaneous
  Country: US (occurrence: US)
  Receive Date: 20200217
  Receipt Date: 20210723
  Transmission Date: 20211014
  Serious: Yes (Hospitalization, Other)
  Sender: FDA-Public Use
  Company Number: US-GILEAD-2020-0450652

PATIENT
  Age: 52 Year
  Sex: Male

DRUGS (61)
  1. ZOLPIDEM [Concomitant]
     Active Substance: ZOLPIDEM TARTRATE
  2. MIRTAZAPINE. [Concomitant]
     Active Substance: MIRTAZAPINE
  3. PREZISTA [Concomitant]
     Active Substance: DARUNAVIR ETHANOLATE
  4. VENLAFAXINE [Concomitant]
     Active Substance: VENLAFAXINE HYDROCHLORIDE
  5. CLEARLAX [Concomitant]
     Active Substance: POLYETHYLENE GLYCOL 3350
  6. GABAPENTIN. [Concomitant]
     Active Substance: GABAPENTIN
  7. CIPROFLOXACIN. [Concomitant]
     Active Substance: CIPROFLOXACIN
  8. HARVONI [Concomitant]
     Active Substance: LEDIPASVIR\SOFOSBUVIR
  9. PILOCARPINE. [Concomitant]
     Active Substance: PILOCARPINE
  10. TIVICAY [Concomitant]
     Active Substance: DOLUTEGRAVIR SODIUM
  11. RANITIDINE. [Concomitant]
     Active Substance: RANITIDINE
  12. ACTONEL [Concomitant]
     Active Substance: RISEDRONATE SODIUM
  13. BUSPIRONE [Concomitant]
     Active Substance: BUSPIRONE HYDROCHLORIDE
  14. PREZCOBIX [Concomitant]
     Active Substance: COBICISTAT\DARUNAVIR ETHANOLATE
  15. REFRESH [CARBOMER] [Concomitant]
     Active Substance: CARBOMER
  16. ATORVASTATIN [Concomitant]
     Active Substance: ATORVASTATIN
  17. ISENTRESS [Concomitant]
     Active Substance: RALTEGRAVIR POTASSIUM
  18. SEROQUEL [Concomitant]
     Active Substance: QUETIAPINE FUMARATE
  19. TERBINAFINE. [Concomitant]
     Active Substance: TERBINAFINE
  20. BIKTARVY [Concomitant]
     Active Substance: BICTEGRAVIR SODIUM\EMTRICITABINE\TENOFOVIR ALAFENAMIDE FUMARATE
  21. TAMSULOSIN [Concomitant]
     Active Substance: TAMSULOSIN
  22. SELZENTRY [Concomitant]
     Active Substance: MARAVIROC
  23. VALACYCLOVIR [Concomitant]
     Active Substance: VALACYCLOVIR HYDROCHLORIDE
  24. MUPIROCIN. [Concomitant]
     Active Substance: MUPIROCIN
  25. ANDROGEL [Concomitant]
     Active Substance: TESTOSTERONE
  26. DOXAZOSIN MESYLATE. [Concomitant]
     Active Substance: DOXAZOSIN MESYLATE
  27. AZITHROMYCIN ANHYDROUS. [Concomitant]
     Active Substance: AZITHROMYCIN ANHYDROUS
  28. NORVIR [Concomitant]
     Active Substance: RITONAVIR
  29. FLUTICASONE. [Concomitant]
     Active Substance: FLUTICASONE
  30. DESCOVY [Concomitant]
     Active Substance: EMTRICITABINE\TENOFOVIR ALAFENAMIDE FUMARATE
  31. SILDENAFIL. [Concomitant]
     Active Substance: SILDENAFIL
  32. AZELASTINE. [Concomitant]
     Active Substance: AZELASTINE HYDROCHLORIDE
  33. FINASTERIDE. [Concomitant]
     Active Substance: FINASTERIDE
  34. DESVENLAFAXINE. [Concomitant]
     Active Substance: DESVENLAFAXINE
  35. TRINTELLIX [Concomitant]
     Active Substance: VORTIOXETINE HYDROBROMIDE
  36. CEPHALEXIN [CEFALEXIN] [Concomitant]
     Active Substance: CEPHALEXIN
  37. CLONAZEPAM. [Concomitant]
     Active Substance: CLONAZEPAM
  38. BUSPIRONE HCL [Concomitant]
     Active Substance: BUSPIRONE HYDROCHLORIDE
  39. ABILIFY [Concomitant]
     Active Substance: ARIPIPRAZOLE
  40. ALENDRONATE [Concomitant]
     Active Substance: ALENDRONATE SODIUM
  41. SULFAMETHOXAZOLE AND TRIMETHOPRIM [Concomitant]
     Active Substance: SULFAMETHOXAZOLE\TRIMETHOPRIM
  42. NEXIUM I.V. [Concomitant]
     Active Substance: ESOMEPRAZOLE SODIUM
  43. AMOXICILLIN. [Concomitant]
     Active Substance: AMOXICILLIN
  44. FLUNISOLIDE. [Concomitant]
     Active Substance: FLUNISOLIDE
  45. BACLOFEN. [Concomitant]
     Active Substance: BACLOFEN
  46. PRISTIQ EXTENDED?RELEASE [Concomitant]
     Active Substance: DESVENLAFAXINE SUCCINATE
  47. VIREAD [Suspect]
     Active Substance: TENOFOVIR DISOPROXIL FUMARATE
     Indication: HIV INFECTION
     Route: 048
  48. HYDROCODONE/ACETAMINOPHEN [Concomitant]
     Active Substance: ACETAMINOPHEN\HYDROCODONE
  49. DRONABINOL. [Concomitant]
     Active Substance: DRONABINOL
  50. CYMBALTA [Concomitant]
     Active Substance: DULOXETINE HYDROCHLORIDE
  51. LIDOCAINE 5% EXTRA [Concomitant]
  52. TRUVADA [Suspect]
     Active Substance: EMTRICITABINE\TENOFOVIR DISOPROXIL FUMARATE
     Indication: HIV INFECTION
     Dosage: UNK
     Route: 048
     Dates: start: 200802, end: 201704
  53. QUETIAPINE FUMARATE. [Concomitant]
     Active Substance: QUETIAPINE FUMARATE
  54. KETOCONAZOLE. [Concomitant]
     Active Substance: KETOCONAZOLE
  55. PANTOPRAZOLE [Concomitant]
     Active Substance: PANTOPRAZOLE
  56. IBUPROFEN. [Concomitant]
     Active Substance: IBUPROFEN
  57. RESTASIS [Concomitant]
     Active Substance: CYCLOSPORINE
  58. OFLOXACIN. [Concomitant]
     Active Substance: OFLOXACIN
  59. TAMIFLU [Concomitant]
     Active Substance: OSELTAMIVIR PHOSPHATE
  60. IBANDRONATE [Concomitant]
     Active Substance: IBANDRONATE SODIUM
  61. FLUVIRIN [INFLUENZA VACCINE INACT SAG 3V] [Concomitant]

REACTIONS (20)
  - Humerus fracture [Recovered/Resolved]
  - Bacterial prostatitis [Recovered/Resolved]
  - Renal injury [Not Recovered/Not Resolved]
  - Pyelonephritis [Unknown]
  - Osteopenia [Not Recovered/Not Resolved]
  - Economic problem [Unknown]
  - Osteoporosis [Not Recovered/Not Resolved]
  - Fracture [Unknown]
  - Anhedonia [Unknown]
  - Genotype drug resistance test positive [Unknown]
  - Blood HIV RNA increased [Unknown]
  - Drug ineffective [Recovered/Resolved]
  - Renal failure [Not Recovered/Not Resolved]
  - Bone density decreased [Unknown]
  - Pain [Unknown]
  - Sepsis [Recovered/Resolved]
  - Emotional distress [Unknown]
  - Anxiety [Unknown]
  - HIV viraemia [Recovered/Resolved]
  - Product dose omission issue [Unknown]

NARRATIVE: CASE EVENT DATE: 20080603
